FAERS Safety Report 25129249 (Version 1)
Quarter: 2025Q1

REPORT INFORMATION
  Report Type: Report from Study
  Country: US (occurrence: US)
  Receive Date: 20250327
  Receipt Date: 20250327
  Transmission Date: 20250409
  Serious: Yes (Other)
  Sender: TEVA
  Company Number: US-TEVA-VS-3312730

PATIENT
  Age: 60 Year
  Sex: Female

DRUGS (3)
  1. CETIRIZINE [Suspect]
     Active Substance: CETIRIZINE HYDROCHLORIDE
     Indication: Allergy prophylaxis
     Route: 048
  2. CARBOPLATIN [Suspect]
     Active Substance: CARBOPLATIN
     Indication: Ovarian cancer
     Route: 065
  3. RANITIDINE [Concomitant]
     Active Substance: RANITIDINE
     Indication: Gastritis prophylaxis
     Route: 042

REACTIONS (10)
  - Drug hypersensitivity [Unknown]
  - Drug ineffective [Unknown]
  - Angioedema [Unknown]
  - Flushing [Unknown]
  - Urticaria [Unknown]
  - Pruritus [Unknown]
  - Rhinitis [Unknown]
  - Hypotension [Unknown]
  - Hypoxia [Unknown]
  - Wheezing [Unknown]
